FAERS Safety Report 8417289 (Version 2)
Quarter: 2015Q1

REPORT INFORMATION
  Report Type: Report from Study
  Country: US (occurrence: US)
  Receive Date: 20120220
  Receipt Date: 20150313
  Transmission Date: 20150721
  Serious: Yes (Death)
  Sender: FDA-Public Use
  Company Number: US-ROCHE-1040264

PATIENT
  Sex: Female

DRUGS (2)
  1. XELODA [Suspect]
     Active Substance: CAPECITABINE
     Indication: GASTRIC CANCER
     Dosage: FREQUENCY: 4 TABLET EVERY MORNING AND 3 TABLET EVERY EVENING
     Route: 048
     Dates: start: 20111206
  2. ELOXATIN [Concomitant]
     Active Substance: OXALIPLATIN

REACTIONS (1)
  - Death [Fatal]
